FAERS Safety Report 6037681-5 (Version None)
Quarter: 2009Q1

REPORT INFORMATION
  Report Type: 
  Country: None (occurrence: None)
  Receive Date: 20090114
  Receipt Date: 20090102
  Transmission Date: 20090719
  Serious: Yes (Hospitalization)
  Sender: FDA-Public Use
  Company Number: FR-PFIZER INC-2009150936

PATIENT

DRUGS (3)
  1. ZOLOFT [Suspect]
     Route: 064
     Dates: start: 20070704, end: 20071119
  2. BROMAZEPAM [Suspect]
     Dosage: UNK
     Route: 064
     Dates: start: 20070704, end: 20071119
  3. FOLIC ACID [Concomitant]
     Route: 064

REACTIONS (4)
  - DRUG EXPOSURE DURING PREGNANCY [None]
  - NEONATAL DISORDER [None]
  - RESPIRATION ABNORMAL [None]
  - TREMOR [None]
